FAERS Safety Report 10645237 (Version 2)
Quarter: 2015Q1

REPORT INFORMATION
  Report Type: Report from Study
  Country: CA (occurrence: CA)
  Receive Date: 20141211
  Receipt Date: 20150304
  Transmission Date: 20150720
  Serious: Yes (Other)
  Sender: FDA-Public Use
  Company Number: CA-AMGEN-CANSL2014095496

PATIENT
  Age: 48 Year
  Sex: Female

DRUGS (1)
  1. NPLATE [Suspect]
     Active Substance: ROMIPLOSTIM
     Indication: IMMUNE THROMBOCYTOPENIC PURPURA
     Dosage: UNK
     Route: 065
     Dates: start: 20140703

REACTIONS (6)
  - Viral infection [Unknown]
  - Petechiae [Unknown]
  - Gingival bleeding [Unknown]
  - Respiratory tract congestion [Unknown]
  - Gingival pain [Unknown]
  - Contusion [Unknown]

NARRATIVE: CASE EVENT DATE: 2014
